FAERS Safety Report 14000141 (Version 1)
Quarter: 2017Q3

REPORT INFORMATION
  Report Type: Spontaneous
  Country: US (occurrence: US)
  Receive Date: 20170922
  Receipt Date: 20170922
  Transmission Date: 20171128
  Serious: No
  Sender: FDA-Public Use
  Company Number: US-JNJFOC-20170813905

PATIENT
  Sex: Female
  Weight: 67.13 kg

DRUGS (2)
  1. XARELTO [Suspect]
     Active Substance: RIVAROXABAN
     Indication: PULMONARY EMBOLISM
     Route: 048
     Dates: start: 201708
  2. XARELTO [Suspect]
     Active Substance: RIVAROXABAN
     Indication: PULMONARY EMBOLISM
     Route: 048
     Dates: start: 2016, end: 2016

REACTIONS (4)
  - Off label use [Unknown]
  - Underdose [Unknown]
  - Oesophageal discomfort [Unknown]
  - Incision site pain [Unknown]

NARRATIVE: CASE EVENT DATE: 2016
